FAERS Safety Report 7964368-1 (Version None)
Quarter: 2011Q4

REPORT INFORMATION
  Report Type: 
  Country: None (occurrence: None)
  Receive Date: 20111208
  Receipt Date: 20111202
  Transmission Date: 20120403
  Serious: Yes (Death, Hospitalization)
  Sender: FDA-Public Use
  Company Number: JP-PFIZER INC-2011252590

PATIENT
  Age: 53 Year
  Sex: Male
  Weight: 63.9 kg

DRUGS (5)
  1. TEMSIROLIMUS [Suspect]
     Indication: RENAL CELL CARCINOMA
     Dosage: 25 MG, WEEKLY
     Route: 042
     Dates: start: 20110727
  2. BETAMETHASONE [Concomitant]
     Indication: RENAL CELL CARCINOMA
     Dosage: 2 MG, 2X/DAY
     Route: 048
     Dates: start: 20110714, end: 20110922
  3. LASIX [Concomitant]
     Indication: HYPERKALAEMIA
     Dosage: 20 MG, 1X/DAY
     Route: 048
     Dates: start: 20110729, end: 20110922
  4. RESTAMIN [Concomitant]
     Indication: PROPHYLAXIS
     Dosage: 50 MG, 1X/DAY
     Route: 048
  5. OXYCONTIN [Concomitant]
     Indication: RENAL CELL CARCINOMA
     Dosage: 10 MG, 2X/DAY
     Route: 048
     Dates: start: 20110713, end: 20110922

REACTIONS (3)
  - ANAL ABSCESS [None]
  - DISEASE PROGRESSION [None]
  - RENAL CELL CARCINOMA [None]
